FAERS Safety Report 9507974 (Version 1)
Quarter: 2013Q1

REPORT INFORMATION
  Report Type: Spontaneous
  Country: US (occurrence: None)
  Receive Date: 20130305
  Receipt Date: 20130305
  Transmission Date: 20140127
  Serious: Yes (Hospitalization)
  Sender: FDA-Public Use
  Company Number: 163-21880-12052770

PATIENT
  Sex: Male

DRUGS (9)
  1. REVLIMID (LENALIDOMIDE) (25 MILLIGRAM, CAPSULES) [Suspect]
     Indication: PLASMA CELL MYELOMA
     Dosage: 25 MG, 21, PO
     Route: 048
     Dates: start: 20120127
  2. VITAMIN B6 (PYRIDOXINE HYDROCHLORIDE) [Concomitant]
  3. THERAGRAN-M ADVANCED 50 PLUS (THERAGRAN-M) [Concomitant]
  4. HUMALOG PEN (INSULIN LISPRO) [Concomitant]
  5. LANTUS (INSULIN GLARGINE) [Concomitant]
  6. ASPIRIN (ACETYLSALICYLIC ACID) [Concomitant]
  7. FISH OIL (FISH OIL) [Concomitant]
  8. COQ-10 (UBIDECARENONE) [Concomitant]
  9. GLUCOSAMINE SULFATE [Concomitant]

REACTIONS (1)
  - Back pain [None]
